FAERS Safety Report 22817182 (Version 2)
Quarter: 2023Q4

REPORT INFORMATION
  Report Type: Report from Study
  Country: DE (occurrence: DE)
  Receive Date: 20230812
  Receipt Date: 20231014
  Transmission Date: 20240110
  Serious: Yes (Hospitalization, Other)
  Sender: FDA-Public Use
  Company Number: DE-002147023-NVSC2019DE048100

PATIENT
  Sex: Female
  Weight: 89.5 kg

DRUGS (8)
  1. FULVESTRANT [Suspect]
     Active Substance: FULVESTRANT
     Indication: Breast cancer metastatic
     Dosage: 500 MILLIGRAM DAILY; 500 MG (DAILY DOSE), QMO
     Route: 065
     Dates: start: 20190708, end: 20211018
  2. KISQALI [Suspect]
     Active Substance: RIBOCICLIB
     Indication: Breast cancer metastatic
     Dosage: 400 MILLIGRAM DAILY; 400 MG, QD (SCHEMA 21 DAYS INTAKE, 7 DAYS PAUSE), DURATION : 7 DAYS
     Route: 065
     Dates: start: 20200504, end: 20200511
  3. KISQALI [Suspect]
     Active Substance: RIBOCICLIB
     Dosage: 600 MILLIGRAM DAILY; 600 MG, QD (SCHEMA 21 DAYS INTAKE, 7 DAYS PAUSE), DURATION : 20 DAYS
     Route: 065
     Dates: start: 20200127, end: 20200216
  4. KISQALI [Suspect]
     Active Substance: RIBOCICLIB
     Dosage: 600 MILLIGRAM DAILY; 600 MG, QD (SCHEMA 21 DAYS INTAKE, 7 DAYS PAUSE), DURATION : 76 DAYS
     Route: 065
     Dates: start: 20200217, end: 20200503
  5. KISQALI [Suspect]
     Active Substance: RIBOCICLIB
     Dosage: 200 MILLIGRAM DAILY; 200 MG, QD (SCHEMA 21 DAYS INTAKE, 7 DAYS PAUSE), DURATION : 472 DAYS
     Route: 065
     Dates: start: 20200703, end: 20211018
  6. KISQALI [Suspect]
     Active Substance: RIBOCICLIB
     Dosage: 400 MILLIGRAM DAILY; 400 MG, QD (SCHEMA 21 DAYS INTAKE, 7 DAYS PAUSE), DURATION : 42 DAYS
     Route: 065
     Dates: start: 20200521, end: 20200702
  7. KISQALI [Suspect]
     Active Substance: RIBOCICLIB
     Dosage: 600 MILLIGRAM DAILY; 600 MG, QD (SCHEMA 21 DAYS INTAKE, 7 DAYS PAUSE), DURATION : 192 DAYS
     Route: 065
     Dates: start: 20190708, end: 20200116
  8. AFINITOR [Concomitant]
     Active Substance: EVEROLIMUS
     Indication: Breast cancer metastatic
     Dosage: 7.5 MILLIGRAM DAILY; 7.5 MG, QD
     Route: 065
     Dates: start: 20211206, end: 20221219

REACTIONS (6)
  - Neutropenia [Recovered/Resolved]
  - Leukopenia [Not Recovered/Not Resolved]
  - Leukopenia [Recovered/Resolved]
  - Leukopenia [Recovered/Resolved]
  - Neutropenia [Recovered/Resolved]
  - General physical health deterioration [Recovered/Resolved]

NARRATIVE: CASE EVENT DATE: 20190930
